FAERS Safety Report 4317424-3 (Version None)
Quarter: 2004Q1

REPORT INFORMATION
  Report Type: 
  Country: None (occurrence: None)
  Receive Date: 20040312
  Receipt Date: 20040305
  Transmission Date: 20041129
  Serious: Yes (Hospitalization)
  Sender: FDA-Public Use
  Company Number: 200410720GDS

PATIENT
  Age: 40 Year
  Sex: Male

DRUGS (4)
  1. ASPIRIN [Suspect]
     Indication: SUICIDE ATTEMPT
     Dosage: 8-9 G, ONCE, ORAL
     Route: 048
     Dates: start: 20040109
  2. ACETAMINOPHEN [Suspect]
     Indication: SUICIDE ATTEMPT
     Dosage: 12-16 G, ONCE, ORAL
     Route: 048
     Dates: start: 20040109
  3. CLONAZEPAM [Suspect]
     Indication: SUICIDE ATTEMPT
     Dosage: ONCE, ORAL
     Route: 048
     Dates: start: 20040109
  4. JOHANNISKRAUT-EXTRAKT (HYPERICUM EXTRACT) [Suspect]
     Indication: SUICIDE ATTEMPT
     Dosage: ONCE, ORAL
     Route: 048
     Dates: start: 20040109

REACTIONS (2)
  - DRUG ABUSER [None]
  - SUICIDE ATTEMPT [None]
